FAERS Safety Report 8151470-7 (Version None)
Quarter: 2012Q1

REPORT INFORMATION
  Report Type: 
  Country: None (occurrence: None)
  Receive Date: 20120220
  Receipt Date: 20120207
  Transmission Date: 20120608
  Serious: Yes (Hospitalization)
  Sender: FDA-Public Use
  Company Number: US-ROCHE-1039473

PATIENT
  Sex: Female
  Weight: 47.1 kg

DRUGS (10)
  1. MLN8237 [Suspect]
     Indication: DIFFUSE LARGE B-CELL LYMPHOMA
     Route: 048
     Dates: start: 20120103, end: 20120103
  2. DURAGESIC-100 [Concomitant]
  3. COMPAZINE [Concomitant]
  4. GABAPENTIN [Concomitant]
  5. PERIDEX [Concomitant]
  6. CYMBALTA [Concomitant]
  7. HYDROCODONE BITARTRATE AND ACETAMINOPHEN [Concomitant]
  8. VALTREX [Concomitant]
  9. MABTHERA [Suspect]
     Indication: DIFFUSE LARGE B-CELL LYMPHOMA
     Dosage: CYCLIC
     Route: 042
     Dates: start: 20120103, end: 20120103
  10. LEVAQUIN [Concomitant]

REACTIONS (2)
  - PRESYNCOPE [None]
  - DYSPNOEA [None]
